FAERS Safety Report 8393549-0 (Version None)
Quarter: 2012Q2

REPORT INFORMATION
  Report Type: 
  Country: None (occurrence: None)
  Receive Date: 20120529
  Receipt Date: 20120516
  Transmission Date: 20120825
  Serious: Yes (Hospitalization)
  Sender: FDA-Public Use
  Company Number: GB-AMGEN-GBRSP2012031964

PATIENT
  Sex: Female

DRUGS (1)
  1. ENBREL [Suspect]
     Indication: RHEUMATOID ARTHRITIS
     Dosage: UNK
     Route: 065
     Dates: start: 20100101

REACTIONS (4)
  - WHITE BLOOD CELL COUNT DECREASED [None]
  - SKIN ULCER [None]
  - NEUTROPHIL COUNT DECREASED [None]
  - INFECTION [None]
